FAERS Safety Report 8533545-3 (Version None)
Quarter: 2012Q3

REPORT INFORMATION
  Report Type: 
  Country: None (occurrence: None)
  Receive Date: 20120724
  Receipt Date: 20120717
  Transmission Date: 20120928
  Serious: Yes (Hospitalization, Other)
  Sender: FDA-Public Use
  Company Number: FR-PFIZER INC-2012171553

PATIENT
  Age: 62 Year
  Sex: Male

DRUGS (12)
  1. LANTUS [Concomitant]
     Dosage: 24 IU, UNK
  2. APROVEL 300 [Concomitant]
     Dosage: UNK
  3. RENAGEL [Concomitant]
     Dosage: UNK
  4. FERROUS SULFATE TAB [Concomitant]
     Dosage: UNK
  5. HYPERIUM [Concomitant]
     Dosage: 1 MG, DAILY
  6. PREVISCAN [Concomitant]
     Dosage: 1.5 X 20 MG TABLETS (30 MG), 1X/DAY
  7. LASIX [Concomitant]
     Dosage: 40 MG, 2X/DAY
  8. CORDARONE [Concomitant]
     Dosage: 200 MG, DAILY
  9. BISOPROLOL FUMARATE [Concomitant]
     Dosage: 10 MG, DAILY
  10. REPAGLINIDE [Concomitant]
     Dosage: 2 MG, DAILY
     Route: 048
  11. ATORVASTATIN [Suspect]
     Dosage: 40 MG, DAILY
     Dates: end: 20120531
  12. ADENURIC [Concomitant]
     Dosage: 80 MG, DAILY

REACTIONS (6)
  - POLYMYOSITIS [None]
  - RENAL FAILURE ACUTE [None]
  - RHABDOMYOLYSIS [None]
  - CYTOLYTIC HEPATITIS [None]
  - MYALGIA [None]
  - DYSPHAGIA [None]
